FAERS Safety Report 23484131 (Version 2)
Quarter: 2024Q1

REPORT INFORMATION
  Report Type: Spontaneous
  Country: US (occurrence: US)
  Receive Date: 20240206
  Receipt Date: 20240308
  Transmission Date: 20240409
  Serious: No
  Sender: FDA-Public Use
  Company Number: US-002147023-NVSC2024US024914

PATIENT
  Age: 42 Year
  Sex: Female
  Weight: 190.3 kg

DRUGS (1)
  1. COSENTYX [Suspect]
     Active Substance: SECUKINUMAB
     Indication: Psoriasis
     Dosage: UNK (300MG/2ML EVERY 4 WEEKS) (Q28DAYS)
     Route: 058
     Dates: start: 20220414

REACTIONS (4)
  - Accidental exposure to product [Unknown]
  - Device issue [Recovering/Resolving]
  - Product dose omission issue [Unknown]
  - Psoriasis [Unknown]

NARRATIVE: CASE EVENT DATE: 20240201
